FAERS Safety Report 12720823 (Version 1)
Quarter: 2016Q3

REPORT INFORMATION
  Report Type: Spontaneous
  Country: US (occurrence: US)
  Receive Date: 20160907
  Receipt Date: 20160907
  Transmission Date: 20161109
  Serious: No
  Sender: FDA-Public Use
  Company Number: US-BRISTOL-MYERS SQUIBB COMPANY-BMS-2016-072552

PATIENT
  Sex: Male

DRUGS (1)
  1. SPRYCEL [Suspect]
     Active Substance: DASATINIB
     Indication: THROMBOCYTOSIS
     Dosage: 100 MG, QD
     Route: 048
     Dates: start: 20160804

REACTIONS (2)
  - Pain of skin [Unknown]
  - Fatigue [Unknown]
